FAERS Safety Report 22626886 (Version 5)
Quarter: 2024Q1

REPORT INFORMATION
  Report Type: Report from Study
  Country: US (occurrence: US)
  Receive Date: 20230622
  Receipt Date: 20240312
  Transmission Date: 20240410
  Serious: Yes (Other)
  Sender: FDA-Public Use
  Company Number: US-ABBVIE-5299841

PATIENT
  Age: 59 Year
  Sex: Male

DRUGS (14)
  1. RINVOQ [Suspect]
     Active Substance: UPADACITINIB
     Indication: Colitis ulcerative
     Dosage: FORM STRENGTH: 30 MILLIGRAM
     Route: 048
     Dates: start: 20230102, end: 20230102
  2. RINVOQ [Suspect]
     Active Substance: UPADACITINIB
     Indication: Colitis ulcerative
     Dosage: FORM STRENGTH: 45 MILLIGRAM
     Route: 048
     Dates: start: 20221107, end: 20221107
  3. RINVOQ [Suspect]
     Active Substance: UPADACITINIB
     Indication: Colitis ulcerative
     Dosage: FORM STRENGTH: 15 MILLIGRAM
     Route: 048
     Dates: start: 202312
  4. RINVOQ [Suspect]
     Active Substance: UPADACITINIB
     Indication: Colitis ulcerative
     Dosage: FIRST ADMIN DATE:2023??FREQUENCY TEXT: 1 IN 1 DAY FOR 8 WEEKS
     Route: 048
  5. TYLENOL [Concomitant]
     Active Substance: ACETAMINOPHEN
     Indication: Pain
     Dosage: TAKE 2 TABLETS (650 MG TOTAL) BY MOUTH EVERY 6 HOURS AS NEEDED
     Route: 065
  6. NORVASC [Concomitant]
     Active Substance: AMLODIPINE BESYLATE
     Indication: Product used for unknown indication
     Dosage: TAKE 1 TABLET BY MOUTH EVERY DAY (PATIENT TAKING DIFFERENTLY: EVERY MORNING) DISP: 90 TABLET RFL:3
     Route: 065
     Dates: start: 20220906
  7. COREG [Concomitant]
     Active Substance: CARVEDILOL
     Indication: Product used for unknown indication
     Dosage: TAKE 1 TABLET BY MOUTH TWICE A DAY WITH FOOD, DISP:180 TABLET, RFL:3
     Route: 065
     Dates: start: 20221230
  8. VITAMIN D3 [Concomitant]
     Active Substance: CHOLECALCIFEROL
     Indication: Product used for unknown indication
     Dosage: 25 MCG (1000 UNIT TABLET), TAKE 2 TABLETS (50 MCG TOTAL) BY MOUTH DAILY
     Route: 065
  9. EMGALITY [Concomitant]
     Active Substance: GALCANEZUMAB-GNLM
     Indication: Product used for unknown indication
     Dosage: 300 MG/3ML (100MG/ML*3), INJECT 3 ML (300 MG TOTAL) UNDER THE SKIN EVERY 28 DAYS, DISP:3 ML, RFL:3
     Route: 065
     Dates: start: 20230221, end: 20230307
  10. PRILOSEC [Concomitant]
     Active Substance: OMEPRAZOLE MAGNESIUM
     Indication: Product used for unknown indication
     Dosage: TAKE 1 CAPSULE BY MOUTH ON AN EMPTY STOMACH, 30 MINUTES PRIOR TO A MEAL (PATIENT TAKING DIFFERENT...
     Route: 065
     Dates: start: 20221221, end: 20230717
  11. ELAVIL [Concomitant]
     Active Substance: AMITRIPTYLINE HYDROCHLORIDE
     Indication: Product used for unknown indication
     Dosage: 25 MG
     Route: 065
  12. CICLOPIROX [Concomitant]
     Active Substance: CICLOPIROX\TOCOPHEROL
     Indication: Product used for unknown indication
     Dosage: 8% TOP SOLUTION
     Route: 065
  13. OFLOXACIN [Concomitant]
     Active Substance: OFLOXACIN
     Indication: Product used for unknown indication
     Dosage: 0.3% OPHTHALMIC SOLUTION
     Route: 065
  14. PREDNISOLONE ACETATE [Concomitant]
     Active Substance: PREDNISOLONE ACETATE
     Indication: Product used for unknown indication
     Dosage: 1% OPHTHALMIC SUSPENSION
     Route: 065

REACTIONS (41)
  - Retinal detachment [Unknown]
  - Fatigue [Unknown]
  - Diverticulum intestinal [Unknown]
  - Blood triglycerides increased [Unknown]
  - Colitis [Unknown]
  - Arthralgia [Not Recovered/Not Resolved]
  - Diverticulum [Unknown]
  - Dermatitis atopic [Unknown]
  - Synovial cyst [Unknown]
  - Essential hypertension [Unknown]
  - Cerebral ventricle dilatation [Unknown]
  - Dysphagia [Unknown]
  - Throat clearing [Unknown]
  - Type IIa hyperlipidaemia [Unknown]
  - Gastrooesophageal reflux disease [Unknown]
  - Myalgia [Unknown]
  - Hydrocephalus [Unknown]
  - Colitis ulcerative [Unknown]
  - Osteoarthritis [Unknown]
  - Prostatic disorder [Unknown]
  - Craniotomy [Unknown]
  - Seasonal allergy [Unknown]
  - Vitamin B12 deficiency [Unknown]
  - Colloid brain cyst [Unknown]
  - Inflammatory bowel disease [Unknown]
  - Retinal tear [Unknown]
  - Haemoglobin decreased [Unknown]
  - Blood cholesterol abnormal [Unknown]
  - Protein total abnormal [Unknown]
  - High density lipoprotein decreased [Unknown]
  - Immunosuppressant drug therapy [Unknown]
  - Hyperlipidaemia [Unknown]
  - Obesity [Unknown]
  - Arthritis [Unknown]
  - Retinal degeneration [Unknown]
  - Vitreous detachment [Unknown]
  - Cataract nuclear [Unknown]
  - Retinopathy hypertensive [Unknown]
  - Retinal drusen [Unknown]
  - Heterophoria [Unknown]
  - Headache [Unknown]

NARRATIVE: CASE EVENT DATE: 20230130
